FAERS Safety Report 8221326 (Version 5)
Quarter: 2015Q3

REPORT INFORMATION
  Report Type: Report from Study
  Country: AU (occurrence: AU)
  Receive Date: 20111102
  Receipt Date: 20150825
  Transmission Date: 20151125
  Serious: Yes (Hospitalization, Disabling, Other)
  Sender: FDA-Public Use
  Company Number: PHHY2011AU96039

PATIENT
  Age: 41 Year
  Sex: Male

DRUGS (1)
  1. CLOZARIL [Suspect]
     Active Substance: CLOZAPINE
     Indication: PRODUCT USED FOR UNKNOWN INDICATION
     Dosage: 725 MG, UNK
     Route: 048
     Dates: start: 20031215

REACTIONS (11)
  - Myocardial ischaemia [Recovering/Resolving]
  - Myocardial infarction [Recovering/Resolving]
  - Blood triglycerides increased [Not Recovered/Not Resolved]
  - Acute coronary syndrome [Recovering/Resolving]
  - Waist circumference increased [Not Recovered/Not Resolved]
  - Blood pressure increased [Not Recovered/Not Resolved]
  - Blood glucose increased [Recovered/Resolved]
  - Blood cholesterol increased [Not Recovered/Not Resolved]
  - Heart rate increased [Not Recovered/Not Resolved]
  - Body temperature decreased [Not Recovered/Not Resolved]
  - Body mass index increased [Unknown]

NARRATIVE: CASE EVENT DATE: 20090421
